FAERS Safety Report 15249112 (Version 5)
Quarter: 2018Q3

REPORT INFORMATION
  Report Type: Spontaneous
  Country: CN (occurrence: CN)
  Receive Date: 20180807
  Receipt Date: 20180905
  Transmission Date: 20181010
  Serious: Yes (Death, Hospitalization, Other)
  Sender: FDA-Public Use
  Company Number: CN-ASTRAZENECA-2018SE97768

PATIENT
  Age: 28385 Day
  Sex: Female
  Weight: 42 kg

DRUGS (9)
  1. ASPIRIN. [Concomitant]
     Active Substance: ASPIRIN
  2. INSULIN GLARGINE [Concomitant]
     Active Substance: INSULIN GLARGINE
  3. CRESTOR [Suspect]
     Active Substance: ROSUVASTATIN CALCIUM
     Indication: PERCUTANEOUS CORONARY INTERVENTION
     Route: 048
     Dates: start: 20180613, end: 20180707
  4. METOPROLOL. [Concomitant]
     Active Substance: METOPROLOL
  5. CRESTOR [Suspect]
     Active Substance: ROSUVASTATIN CALCIUM
     Indication: HYPERLIPIDAEMIA
     Route: 048
     Dates: start: 20180613, end: 20180707
  6. CRESTOR [Suspect]
     Active Substance: ROSUVASTATIN CALCIUM
     Indication: ARTERIOSCLEROSIS
     Route: 048
     Dates: start: 20180613, end: 20180707
  7. CRESTOR [Suspect]
     Active Substance: ROSUVASTATIN CALCIUM
     Indication: STENT PLACEMENT
     Route: 048
     Dates: start: 20180613, end: 20180707
  8. PERINDOPRIL [Concomitant]
     Active Substance: PERINDOPRIL
     Dosage: 4MG ??? 30/4MG EVERYDAY
     Route: 048
  9. BRILINTA [Concomitant]
     Active Substance: TICAGRELOR
     Route: 048

REACTIONS (12)
  - Rhabdomyolysis [Fatal]
  - Hepatic failure [Unknown]
  - Septic shock [Unknown]
  - Metabolic encephalopathy [Unknown]
  - Cholelithiasis [Unknown]
  - Coagulopathy [Unknown]
  - Acute kidney injury [Unknown]
  - Pneumonia [Unknown]
  - Respiratory failure [Unknown]
  - Shock [Unknown]
  - Anaemia [Unknown]
  - Multiple organ dysfunction syndrome [Unknown]

NARRATIVE: CASE EVENT DATE: 20180704
